FAERS Safety Report 8297876-7 (Version None)
Quarter: 2012Q2

REPORT INFORMATION
  Report Type: 
  Country: None (occurrence: None)
  Receive Date: 20120419
  Receipt Date: 20120412
  Transmission Date: 20120825
  Serious: Yes (Hospitalization, Other)
  Sender: FDA-Public Use
  Company Number: PHHY2012DE024764

PATIENT
  Age: 47 Year
  Sex: Male
  Weight: 80 kg

DRUGS (7)
  1. MOXONIDINE [Concomitant]
     Indication: HYPERTENSION
     Dosage: 0.4 MG DAILY
     Route: 048
  2. METOPROLOL TARTRATE [Concomitant]
     Indication: HYPERTENSION
     Dosage: 95 MG, DAILY
     Route: 048
     Dates: start: 20080101
  3. RAMIPRIL [Concomitant]
     Dosage: 2.5 MG, UNK
  4. GILENYA [Suspect]
     Indication: RELAPSING-REMITTING MULTIPLE SCLEROSIS
     Dosage: 0.5 MG, QD
     Route: 048
     Dates: start: 20110914
  5. CLOPIDOGREL [Concomitant]
     Dosage: 75 MG, UNK
  6. MICTONORM [Concomitant]
     Indication: DYSURIA
     Dosage: 45 MG, DAILY
     Route: 048
  7. LIORESAL [Concomitant]
     Indication: MUSCLE SPASTICITY
     Dosage: 35 MG, DAILY
     Route: 048
     Dates: start: 19990401

REACTIONS (31)
  - ACUTE CORONARY SYNDROME [None]
  - C-REACTIVE PROTEIN INCREASED [None]
  - DILATATION ATRIAL [None]
  - PNEUMONIA [None]
  - MUSCULAR WEAKNESS [None]
  - TROPONIN INCREASED [None]
  - MITRAL VALVE DISEASE [None]
  - GAIT DISTURBANCE [None]
  - ACUTE MYOCARDIAL INFARCTION [None]
  - WHITE BLOOD CELL COUNT INCREASED [None]
  - ACTIVATED PARTIAL THROMBOPLASTIN TIME PROLONGED [None]
  - CHEST DISCOMFORT [None]
  - PARAESTHESIA [None]
  - MYOCARDIAL INFARCTION [None]
  - BLOOD CREATINE PHOSPHOKINASE MB INCREASED [None]
  - BLOOD PH INCREASED [None]
  - HYPERTENSIVE HEART DISEASE [None]
  - HEART RATE DECREASED [None]
  - PARAPARESIS [None]
  - PROTEIN URINE PRESENT [None]
  - CORONARY ARTERY STENOSIS [None]
  - SEBORRHOEIC DERMATITIS [None]
  - BLOOD PRESSURE INCREASED [None]
  - KETONURIA [None]
  - BLOOD CREATINE PHOSPHOKINASE INCREASED [None]
  - RED BLOOD CELLS URINE POSITIVE [None]
  - BLOOD GLUCOSE INCREASED [None]
  - LEFT VENTRICULAR HYPERTROPHY [None]
  - LUNG INFILTRATION [None]
  - MULTIPLE SCLEROSIS RELAPSE [None]
  - MUSCLE SPASTICITY [None]
